FAERS Safety Report 5940656-5 (Version None)
Quarter: 2008Q4

REPORT INFORMATION
  Report Type: 
  Country: None (occurrence: None)
  Receive Date: 20081030
  Receipt Date: 20081021
  Transmission Date: 20090506
  Serious: Yes (Life-Threatening)
  Sender: FDA-Public Use
  Company Number: GXKR2008GB10040

PATIENT
  Age: 46 Year
  Sex: Female
  Weight: 68.9 kg

DRUGS (5)
  1. WARFARIN SODIUM [Suspect]
     Indication: ATRIAL FIBRILLATION
     Dosage: 3 MG, ORAL
     Route: 048
     Dates: start: 20000601
  2. WARFARIN SODIUM [Suspect]
     Indication: DEPRESSION
     Dosage: 3 MG, ORAL
     Route: 048
     Dates: start: 20000601
  3. ARIPIPRAZOLE [Suspect]
     Indication: DEPRESSION
     Dosage: 10 MG, QD, ORAL
     Route: 048
     Dates: start: 20080801
  4. AMILORIDE (AMILORIDE) [Concomitant]
  5. GLICLAZIDE (GLICLAZIDE) [Concomitant]

REACTIONS (3)
  - DEPRESSION [None]
  - DRUG INTERACTION [None]
  - INTERNATIONAL NORMALISED RATIO INCREASED [None]
